FAERS Safety Report 16380016 (Version 3)
Quarter: 2019Q3

REPORT INFORMATION
  Report Type: Report from Study
  Country: IL (occurrence: IL)
  Receive Date: 20190531
  Receipt Date: 20190715
  Transmission Date: 20191004
  Serious: Yes (Death)
  Sender: FDA-Public Use
  Company Number: IL-B.I. PHARMACEUTICALS,INC./RIDGEFIELD-2019-BI-023519

PATIENT
  Sex: Male
  Weight: 80 kg

DRUGS (4)
  1. SPIOLTO [Suspect]
     Active Substance: OLODATEROL HYDROCHLORIDE\TIOTROPIUM BROMIDE MONOHYDRATE
     Indication: CHRONIC OBSTRUCTIVE PULMONARY DISEASE
     Dosage: DAILY DOSE: 2.5/2.5 MCG
     Route: 055
     Dates: start: 20190225, end: 20190328
  2. FOLEX [Concomitant]
     Indication: ANAEMIA
     Route: 065
  3. SPIOLTO [Suspect]
     Active Substance: OLODATEROL HYDROCHLORIDE\TIOTROPIUM BROMIDE MONOHYDRATE
  4. ASPIRIN. [Concomitant]
     Active Substance: ASPIRIN
     Indication: PRODUCT USED FOR UNKNOWN INDICATION
     Route: 065

REACTIONS (11)
  - Respiratory failure [Fatal]
  - Dyspnoea [Fatal]
  - Sepsis [Fatal]
  - Mental disorder [Fatal]
  - Renal impairment [Fatal]
  - Pneumonia aspiration [Fatal]
  - Cardiac failure congestive [Fatal]
  - Haemorrhagic cerebral infarction [Fatal]
  - Seizure [Fatal]
  - Cerebral haemorrhage [Fatal]
  - Respiratory disorder [Fatal]
